FAERS Safety Report 5947550-4 (Version None)
Quarter: 2008Q4

REPORT INFORMATION
  Report Type: 
  Country: None (occurrence: None)
  Receive Date: 20081110
  Receipt Date: 20081103
  Transmission Date: 20090506
  Serious: Yes (Hospitalization)
  Sender: FDA-Public Use
  Company Number: PHHO2007IL15386

PATIENT
  Sex: Male
  Weight: 54 kg

DRUGS (2)
  1. LDT600 LDT+TAB [Suspect]
     Indication: HEPATITIS B
     Dosage: 600 MG,
     Route: 048
     Dates: start: 20070426, end: 20070822
  2. PEGASYS [Suspect]
     Indication: HEPATITIS B
     Dosage: 180 MCG
     Route: 058
     Dates: start: 20070426, end: 20070822

REACTIONS (4)
  - PAIN [None]
  - PARAESTHESIA [None]
  - PERIPHERAL SENSORY NEUROPATHY [None]
  - SENSORY LOSS [None]
